FAERS Safety Report 12198248 (Version 1)
Quarter: 2016Q1

REPORT INFORMATION
  Report Type: Spontaneous
  Country: US (occurrence: None)
  Receive Date: 20160321
  Receipt Date: 20160321
  Transmission Date: 20160526
  Serious: No
  Sender: FDA-Public Use
  Company Number: None

PATIENT
  Age: 86 Year
  Sex: Female

DRUGS (1)
  1. IAMTINIB 400 MG TAB SUN PHARMA [Suspect]
     Active Substance: IMATINIB
     Dosage: SWITCHED TO BRAND
     Route: 048
     Dates: start: 20160217, end: 20160317

REACTIONS (2)
  - Dyspepsia [None]
  - Dysgeusia [None]

NARRATIVE: CASE EVENT DATE: 20160219
